FAERS Safety Report 9174103 (Version 1)
Quarter: 2013Q1

REPORT INFORMATION
  Report Type: Spontaneous
  Country: US (occurrence: US)
  Receive Date: 20130320
  Receipt Date: 20130320
  Transmission Date: 20140127
  Serious: No
  Sender: FDA-Public Use
  Company Number: US-PFIZER INC-2013091793

PATIENT
  Age: 47 Year
  Sex: Male
  Weight: 122 kg

DRUGS (3)
  1. CHANTIX [Suspect]
     Indication: SMOKING CESSATION THERAPY
     Dosage: ^5 MG TWO TIMES A DAY^
     Route: 048
     Dates: start: 20130315
  2. BUPROPION SR 150 MYLAN [Suspect]
     Indication: SMOKING CESSATION THERAPY
     Dosage: 150 MG, 2X/DAY
     Route: 048
  3. LEVOTHYROXINE [Concomitant]
     Indication: THYROID DISORDER
     Dosage: 125 MCG DAILY
     Route: 048

REACTIONS (2)
  - Drug screen positive [Unknown]
  - Intentional drug misuse [Unknown]
